FAERS Safety Report 18602927 (Version 1)
Quarter: 2020Q4

REPORT INFORMATION
  Report Type: Spontaneous
  Country: US (occurrence: US)
  Receive Date: 20201210
  Receipt Date: 20201210
  Transmission Date: 20210114
  Serious: No
  Sender: FDA-Public Use
  Company Number: US-PERRIGO-20US016050

PATIENT
  Sex: Female
  Weight: 79.37 kg

DRUGS (4)
  1. ZYRTEC [Concomitant]
     Active Substance: CETIRIZINE HYDROCHLORIDE
     Indication: PERENNIAL ALLERGY
  2. ALBUTEROL SULFATE. [Suspect]
     Active Substance: ALBUTEROL SULFATE
     Dosage: UNK, PRN
     Route: 055
     Dates: start: 2020
  3. SYMBICORT [Concomitant]
     Active Substance: BUDESONIDE\FORMOTEROL FUMARATE DIHYDRATE
     Indication: ASTHMA EXERCISE INDUCED
     Dosage: UNK
     Route: 065
     Dates: start: 2020
  4. ALBUTEROL SULFATE. [Suspect]
     Active Substance: ALBUTEROL SULFATE
     Indication: ASTHMA EXERCISE INDUCED
     Dosage: 180 MCG, PRN
     Route: 055
     Dates: start: 2020, end: 2020

REACTIONS (3)
  - Device delivery system issue [Unknown]
  - Incorrect dose administered [Not Recovered/Not Resolved]
  - Drug ineffective [Unknown]

NARRATIVE: CASE EVENT DATE: 2020
